FAERS Safety Report 9157976 (Version 1)
Quarter: 2013Q1

REPORT INFORMATION
  Report Type: Spontaneous
  Country: US (occurrence: None)
  Receive Date: 20130220
  Receipt Date: 20130220
  Transmission Date: 20140127
  Serious: Yes (Other)
  Sender: FDA-Public Use
  Company Number: GB-DEXPHARM-20130032

PATIENT
  Age: 80 Year
  Sex: Female
  Weight: 58.2 kg

DRUGS (9)
  1. OMEPRAZOLE [Suspect]
     Dates: start: 20121015
  2. ALLOPURINOL [Concomitant]
  3. ANASTROZOLE [Concomitant]
  4. ATENOLOL [Concomitant]
  5. BENDROFLUMETHIAZIDE [Concomitant]
  6. BETAMETHASONE VALERATE [Concomitant]
  7. IMUVAC [Concomitant]
  8. LISINOPRIL [Concomitant]
  9. OILATUM [Concomitant]

REACTIONS (1)
  - Tubulointerstitial nephritis [None]
